FAERS Safety Report 25543767 (Version 1)
Quarter: 2025Q3

REPORT INFORMATION
  Report Type: Spontaneous
  Country: SA (occurrence: SA)
  Receive Date: 20250711
  Receipt Date: 20250711
  Transmission Date: 20251020
  Serious: Yes (Disabling)
  Sender: KOWA PHARM
  Company Number: SA-KOWA-25EU001115

PATIENT

DRUGS (4)
  1. PITAVASTATIN CALCIUM [Suspect]
     Active Substance: PITAVASTATIN CALCIUM
     Indication: Dyslipidaemia
     Dosage: 4 MG, QD
     Route: 048
     Dates: start: 202504, end: 20250629
  2. DEXLANSOPRAZOLE [Concomitant]
     Active Substance: DEXLANSOPRAZOLE
     Indication: Product used for unknown indication
  3. TESTOSTERONE [Concomitant]
     Active Substance: TESTOSTERONE
     Indication: Product used for unknown indication
     Dosage: 250 MG/ML EVERY 2 WEEKS
     Route: 030
  4. VIT D [VITAMIN D NOS] [Concomitant]
     Indication: Product used for unknown indication
     Dosage: 50000 IU, QM (ONCE MONTHLY MAINTENANCE DOSE)

REACTIONS (4)
  - Memory impairment [Recovered/Resolved]
  - Nervous system disorder [Recovered/Resolved]
  - Brain fog [Recovered/Resolved]
  - Treatment noncompliance [Unknown]

NARRATIVE: CASE EVENT DATE: 20250419
